FAERS Safety Report 7713900-1 (Version None)
Quarter: 2011Q3

REPORT INFORMATION
  Report Type: 
  Country: None (occurrence: None)
  Receive Date: 20110826
  Receipt Date: 20110815
  Transmission Date: 20111222
  Serious: Yes (Death, Other)
  Sender: FDA-Public Use
  Company Number: FR-GENENTECH-316056

PATIENT

DRUGS (2)
  1. RITUXIMAB [Suspect]
     Indication: B-CELL LYMPHOMA
     Dosage: 375 MG/M2, UNK
     Route: 042
  2. BORTEZOMIB [Suspect]
     Indication: B-CELL LYMPHOMA
     Dosage: 16 MG/M2, DAYS1,8,15 + 22
     Route: 065

REACTIONS (16)
  - PYREXIA [None]
  - NEUTROPENIA [None]
  - PNEUMONIA [None]
  - ANAEMIA [None]
  - THROMBOCYTOPENIA [None]
  - PERIPHERAL SENSORY NEUROPATHY [None]
  - CONSTIPATION [None]
  - UPPER RESPIRATORY TRACT INFECTION [None]
  - NAUSEA [None]
  - NASOPHARYNGITIS [None]
  - SEPTIC SHOCK [None]
  - HERPES ZOSTER [None]
  - DIARRHOEA [None]
  - FATIGUE [None]
  - FEBRILE NEUTROPENIA [None]
  - SEPSIS [None]
